FAERS Safety Report 7087309-0 (Version None)
Quarter: 2010Q4

REPORT INFORMATION
  Report Type: 
  Country: None (occurrence: None)
  Receive Date: 20101108
  Receipt Date: 20101025
  Transmission Date: 20110411
  Serious: Yes (Other)
  Sender: FDA-Public Use
  Company Number: US-ELI_LILLY_AND_COMPANY-US201003004191

PATIENT
  Age: 40 Year
  Sex: Female
  Weight: 84 kg

DRUGS (3)
  1. PEMETREXED [Suspect]
     Indication: CERVIX CARCINOMA
     Dosage: 250 MG/M2, OTHER
     Route: 042
     Dates: start: 20090624
  2. CISPLATIN [Suspect]
     Indication: CERVIX CARCINOMA
     Dosage: 50 MG/M2, OTHER
     Route: 042
     Dates: start: 20090624
  3. RED BLOOD CELLS, CONCENTRATED [Concomitant]
     Dosage: 1 U, UNK
     Dates: start: 20100115, end: 20100115

REACTIONS (1)
  - HYPERTENSION [None]
